FAERS Safety Report 19595038 (Version 2)
Quarter: 2021Q3

REPORT INFORMATION
  Report Type: Spontaneous
  Country: AR (occurrence: AR)
  Receive Date: 20210722
  Receipt Date: 20210802
  Transmission Date: 20211014
  Serious: Yes (Other)
  Sender: FDA-Public Use
  Company Number: AR-BAYER-2021-161708

PATIENT
  Age: 48 Year
  Sex: Female

DRUGS (1)
  1. MIRENA [Suspect]
     Active Substance: LEVONORGESTREL
     Dosage: 20 ?G PER DAY CONTINUOUSLY
     Route: 015
     Dates: start: 20180207

REACTIONS (5)
  - Complication of device removal [None]
  - Genital haemorrhage [None]
  - Device expulsion [Not Recovered/Not Resolved]
  - Uterine haemorrhage [None]
  - Device breakage [None]

NARRATIVE: CASE EVENT DATE: 202106
